FAERS Safety Report 11142030 (Version 4)
Quarter: 2017Q3

REPORT INFORMATION
  Report Type: Report from Study
  Country: None (occurrence: US)
  Receive Date: 20150527
  Receipt Date: 20170929
  Transmission Date: 20171127
  Serious: Yes (Hospitalization)
  Sender: FDA-Public Use
  Company Number: US-ABBVIE-15P-163-1392821-00

PATIENT
  Age: 32 Year
  Sex: Male

DRUGS (2)
  1. HUMIRA [Suspect]
     Active Substance: ADALIMUMAB
     Indication: PSORIASIS
  2. HUMIRA [Suspect]
     Active Substance: ADALIMUMAB
     Indication: PSORIATIC ARTHROPATHY
     Route: 058

REACTIONS (6)
  - Haemoglobin increased [Recovered/Resolved]
  - Full blood count abnormal [Not Recovered/Not Resolved]
  - Mental disorder [Unknown]
  - Liver function test increased [Unknown]
  - Device issue [Unknown]
  - Red blood cell count increased [Recovered/Resolved]

NARRATIVE: CASE EVENT DATE: 201504
